FAERS Safety Report 8211068-9 (Version None)
Quarter: 2012Q1

REPORT INFORMATION
  Report Type: 
  Country: None (occurrence: None)
  Receive Date: 20120315
  Receipt Date: 20120312
  Transmission Date: 20120608
  Serious: Yes (Hospitalization)
  Sender: FDA-Public Use
  Company Number: PHEH2012US005715

PATIENT
  Sex: Female

DRUGS (1)
  1. EXJADE [Suspect]
     Indication: IRON METABOLISM DISORDER
     Dosage: 500 MG, DAILY
     Route: 048
     Dates: start: 20060509

REACTIONS (5)
  - CARDIAC FAILURE [None]
  - LUNG INFECTION [None]
  - RESPIRATORY FAILURE [None]
  - RENAL FAILURE [None]
  - KIDNEY INFECTION [None]
